FAERS Safety Report 15330388 (Version 1)
Quarter: 2018Q3

REPORT INFORMATION
  Report Type: Spontaneous
  Country: US (occurrence: US)
  Receive Date: 20180829
  Receipt Date: 20180829
  Transmission Date: 20181010
  Serious: Yes (Hospitalization, Other)
  Sender: FDA-Public Use
  Company Number: US-SA-2018SA231145

PATIENT
  Age: 11 Year
  Sex: Male

DRUGS (17)
  1. LANTUS [Suspect]
     Active Substance: INSULIN GLARGINE
     Indication: PRODUCT USED FOR UNKNOWN INDICATION
  2. PULMOZYME [Suspect]
     Active Substance: DORNASE ALFA
     Indication: CYSTIC FIBROSIS
     Dosage: 1 VIAL, QD
     Route: 055
     Dates: start: 20150416
  3. ORKAMBI [Suspect]
     Active Substance: IVACAFTOR\LUMACAFTOR
     Indication: CYSTIC FIBROSIS
     Dosage: 2 DF, BID
     Route: 048
     Dates: start: 20170717
  4. ALBUTEROL [SALBUTAMOL] [Suspect]
     Active Substance: ALBUTEROL
     Indication: CYSTIC FIBROSIS
     Dosage: INHALE 1 VIAL EVERY 6 HOURS AS NEEDED
     Route: 055
  5. PANCREATIN [Suspect]
     Active Substance: PANCRELIPASE
     Indication: CYSTIC FIBROSIS
     Dosage: UNK
     Route: 048
  6. CETIRIZINE [Suspect]
     Active Substance: CETIRIZINE HYDROCHLORIDE
     Indication: CYSTIC FIBROSIS
     Dosage: 1 DF, QD
     Route: 048
  7. CULTURELLE [Suspect]
     Active Substance: LACTOBACILLUS RHAMNOSUS
     Indication: CYSTIC FIBROSIS
     Dosage: 1 DF, BID
     Route: 048
  8. SODIUM CHLORIDE. [Suspect]
     Active Substance: SODIUM CHLORIDE
     Indication: CYSTIC FIBROSIS
     Dosage: 1 VIAL BID
     Route: 055
  9. AZTREONAM LYSINE [Suspect]
     Active Substance: AZTREONAM LYSINE
     Indication: CYSTIC FIBROSIS
     Dosage: 1 UNK, TID
     Route: 055
     Dates: start: 20180227
  10. FLUTICASONE. [Suspect]
     Active Substance: FLUTICASONE
     Indication: CYSTIC FIBROSIS
     Dosage: USE 1 SPRAY IN EACH NOSTRIL, QD
     Route: 045
  11. SINGULAIR [Suspect]
     Active Substance: MONTELUKAST SODIUM
     Indication: PRODUCT USED FOR UNKNOWN INDICATION
  12. INSULIN LISPRO [Suspect]
     Active Substance: INSULIN LISPRO
     Indication: PRODUCT USED FOR UNKNOWN INDICATION
     Dosage: UNK
     Dates: start: 20170817
  13. MONTELUKAST [Suspect]
     Active Substance: MONTELUKAST SODIUM
     Indication: CYSTIC FIBROSIS
     Dosage: CHEW AND SWALLOW 1 TAB DAILY QD
     Route: 048
  14. BASAGLAR [Suspect]
     Active Substance: INSULIN GLARGINE
     Indication: CYSTIC FIBROSIS
     Dosage: 13 IU, QD
  15. SERTRALINE [Suspect]
     Active Substance: SERTRALINE HYDROCHLORIDE
     Indication: CYSTIC FIBROSIS
     Dosage: 1 TAB PO DAILY
     Route: 048
  16. SALBUTAMOL [Suspect]
     Active Substance: ALBUTEROL
     Indication: CYSTIC FIBROSIS
     Dosage: 2?4 PUFFS Q4HR
     Route: 055
  17. DULERA [Suspect]
     Active Substance: FORMOTEROL FUMARATE DIHYDRATE\MOMETASONE FUROATE
     Indication: CYSTIC FIBROSIS
     Dosage: INHALE 2 PUFFS BID
     Route: 055

REACTIONS (1)
  - Cystic fibrosis [Unknown]

NARRATIVE: CASE EVENT DATE: 20180807
